FAERS Safety Report 12978061 (Version 3)
Quarter: 2017Q1

REPORT INFORMATION
  Report Type: Report from Study
  Country: JP (occurrence: JP)
  Receive Date: 20161128
  Receipt Date: 20170127
  Transmission Date: 20170428
  Serious: Yes (Hospitalization, Other)
  Sender: FDA-Public Use
  Company Number: JP-VIIV HEALTHCARE LIMITED-JP2016JPN170142

PATIENT
  Age: 5 Decade
  Sex: Male

DRUGS (12)
  1. MICARDIS [Concomitant]
     Active Substance: TELMISARTAN
     Indication: HYPERTENSION
     Dosage: 40 MG, QD
     Dates: start: 20120524
  2. ALOSITOL [Concomitant]
     Active Substance: ALLOPURINOL
     Indication: HYPERURICAEMIA
     Dosage: 100 MG, QD
     Dates: start: 20141030, end: 20150622
  3. DAIPHEN [Suspect]
     Active Substance: SULFAMETHOXAZOLE\TRIMETHOPRIM
     Indication: PNEUMOCYSTIS JIROVECII PNEUMONIA
     Dosage: 3 DF, TID
     Route: 048
     Dates: start: 20150622, end: 20150703
  4. TETRAMIDE [Concomitant]
     Active Substance: MIANSERIN
     Indication: DEPRESSION
     Dosage: 60-20MG, QD
  5. SILECE [Concomitant]
     Active Substance: FLUNITRAZEPAM
     Indication: DEPRESSION
     Dosage: 1 MG, QD
  6. ABACAVIRSULPHATE+DOLUTEGRAVIR+LAMIVUDINE [Suspect]
     Active Substance: ABACAVIR SULFATE\DOLUTEGRAVIR SODIUM\LAMIVUDINE
     Dosage: 1 DF, UNK
     Route: 048
     Dates: start: 20150727
  7. ABACAVIRSULPHATE+DOLUTEGRAVIR+LAMIVUDINE [Suspect]
     Active Substance: ABACAVIR SULFATE\DOLUTEGRAVIR SODIUM\LAMIVUDINE
     Indication: HIV INFECTION
     Dosage: 1 DF, UNK
     Route: 048
     Dates: start: 20150608, end: 20150622
  8. TENORMIN [Concomitant]
     Active Substance: ATENOLOL
     Indication: HYPERTENSION
     Dosage: 37.5 MG, QD
     Dates: end: 20150714
  9. DEPAS [Concomitant]
     Active Substance: ETIZOLAM
     Indication: DEPRESSION
     Dosage: 0.5 MG, TID
  10. BENAMBAX [Suspect]
     Active Substance: PENTAMIDINE
     Indication: PNEUMOCYSTIS JIROVECII PNEUMONIA
     Dosage: 260 MG, QD
     Route: 042
     Dates: start: 20150704, end: 20150709
  11. AMOXAN [Concomitant]
     Active Substance: AMOXAPINE
     Indication: DEPRESSION
     Dosage: 50-25MG, QD
  12. TRYPTANOL [Concomitant]
     Active Substance: AMITRIPTYLINE
     Indication: DEPRESSION
     Dosage: 50-10MG, QD

REACTIONS (5)
  - Hyperkalaemia [Recovered/Resolved]
  - Blood creatinine increased [Recovered/Resolved]
  - Immune reconstitution inflammatory syndrome [Recovering/Resolving]
  - Hepatic enzyme increased [Recovering/Resolving]
  - Pneumocystis jirovecii pneumonia [Recovering/Resolving]

NARRATIVE: CASE EVENT DATE: 20150618
